FAERS Safety Report 8138180-7 (Version None)
Quarter: 2012Q1

REPORT INFORMATION
  Report Type: 
  Country: None (occurrence: None)
  Receive Date: 20120213
  Receipt Date: 20120131
  Transmission Date: 20120608
  Serious: Yes (Death)
  Sender: FDA-Public Use
  Company Number: ADR-2012-00287

PATIENT
  Sex: Female

DRUGS (1)
  1. BACLOFEN [Suspect]
     Indication: MUSCLE SPASTICITY
     Dosage: SEE IMAGE
     Route: 037

REACTIONS (3)
  - COLON OPERATION [None]
  - GENERAL PHYSICAL HEALTH DETERIORATION [None]
  - DEVICE FAILURE [None]
